FAERS Safety Report 4462551-3 (Version None)
Quarter: 2004Q3

REPORT INFORMATION
  Report Type: 
  Country: None (occurrence: None)
  Receive Date: 20040924
  Receipt Date: 20040909
  Transmission Date: 20050211
  Serious: Yes (Death)
  Sender: FDA-Public Use
  Company Number: L04-SWE-04217-01

PATIENT
  Age: 37 Year
  Sex: Female

DRUGS (4)
  1. CITALOPRAM HYDROBROMIDE [Suspect]
     Indication: ANXIETY
  2. CITALOPRAM HYDROBROMIDE [Suspect]
     Indication: DEPRESSED MOOD
  3. CITALOPRAM HYDROBROMIDE [Suspect]
     Indication: MENTAL DISORDER
  4. CITALOPRAM HYDROBROMIDE [Suspect]
     Indication: DEPRESSED MOOD
     Dates: start: 19970501

REACTIONS (13)
  - ABNORMAL BEHAVIOUR [None]
  - ANXIETY [None]
  - COMPLETED SUICIDE [None]
  - CONDITION AGGRAVATED [None]
  - DELUSION [None]
  - INJURY ASPHYXIATION [None]
  - INSOMNIA [None]
  - INTENTIONAL OVERDOSE [None]
  - NERVOUSNESS [None]
  - PSYCHOTIC DISORDER [None]
  - SELF-MEDICATION [None]
  - SUICIDE ATTEMPT [None]
  - TREATMENT NONCOMPLIANCE [None]
